FAERS Safety Report 7304645-0 (Version None)
Quarter: 2011Q1

REPORT INFORMATION
  Report Type: 
  Country: None (occurrence: None)
  Receive Date: 20110222
  Receipt Date: 20110209
  Transmission Date: 20110831
  Serious: Yes (Hospitalization, Other)
  Sender: FDA-Public Use
  Company Number: US-PAR PHARMACEUTICAL, INC-2011SCPR002683

PATIENT
  Age: 63 Year
  Sex: Male

DRUGS (2)
  1. METRONIDAZOLE [Suspect]
     Indication: ABSCESS
     Dosage: 500 MG, EVERY 6 HOURS
     Route: 048
  2. VANCOMYCIN [Concomitant]
     Indication: ABSCESS
     Dosage: UNK
     Route: 042

REACTIONS (1)
  - CEREBELLAR ATAXIA [None]
